FAERS Safety Report 4519764-1 (Version None)
Quarter: 2004Q4

REPORT INFORMATION
  Report Type: 
  Country: None (occurrence: None)
  Receive Date: 20041203
  Receipt Date: 20041203
  Transmission Date: 20050328
  Serious: Yes (Other)
  Sender: FDA-Public Use
  Company Number: None

PATIENT
  Age: 61 Year
  Sex: Female
  Weight: 65.7716 kg

DRUGS (2)
  1. ACTONEL [Suspect]
     Indication: OSTEOPENIA
     Dosage: ONE  WEEKLY  ORAL
     Route: 048
     Dates: start: 20041012, end: 20041117
  2. ACTONEL [Suspect]
     Indication: OSTEOPOROSIS
     Dosage: ONE  WEEKLY  ORAL
     Route: 048
     Dates: start: 20041012, end: 20041117

REACTIONS (5)
  - ARTHRALGIA [None]
  - ASTHENIA [None]
  - DIFFICULTY IN WALKING [None]
  - MOVEMENT DISORDER [None]
  - MYALGIA [None]
